FAERS Safety Report 11249263 (Version 1)
Quarter: 2015Q3

REPORT INFORMATION
  Report Type: Spontaneous
  Country: US (occurrence: US)
  Receive Date: 20150708
  Receipt Date: 20150708
  Transmission Date: 20151125
  Serious: No
  Sender: FDA-Public Use
  Company Number: US-ELI_LILLY_AND_COMPANY-US200909006110

PATIENT
  Sex: Female

DRUGS (2)
  1. DECADRON [Concomitant]
     Active Substance: DEXAMETHASONE
     Dosage: UNK, DAY BEFORE, DAY OF AND DAY AFTER ALIMTA INFUSION
  2. ALIMTA [Suspect]
     Active Substance: PEMETREXED DISODIUM
     Indication: NON-SMALL CELL LUNG CANCER
     Dosage: 500 MG/M2, UNK
     Route: 042
     Dates: start: 20090915

REACTIONS (2)
  - Blood glucose increased [Unknown]
  - Rash generalised [Unknown]

NARRATIVE: CASE EVENT DATE: 200909
